FAERS Safety Report 6900156-2 (Version None)
Quarter: 2010Q3

REPORT INFORMATION
  Report Type: 
  Country: None (occurrence: None)
  Receive Date: 20100708
  Receipt Date: 20100503
  Transmission Date: 20110219
  Serious: Yes (Other)
  Sender: FDA-Public Use
  Company Number: 2010043610

PATIENT
  Age: 49 Year
  Sex: Male
  Weight: 132 kg

DRUGS (1)
  1. CHANTIX [Suspect]
     Indication: SMOKING CESSATION THERAPY
     Dates: start: 20091101, end: 20100101

REACTIONS (3)
  - ANXIETY [None]
  - NIGHTMARE [None]
  - PARANOIA [None]
